FAERS Safety Report 6583736-6 (Version None)
Quarter: 2010Q1

REPORT INFORMATION
  Report Type: 
  Country: None (occurrence: None)
  Receive Date: 20100212
  Receipt Date: 20100212
  Transmission Date: 20100710
  Serious: Yes (Life-Threatening, Hospitalization)
  Sender: FDA-Public Use
  Company Number: None

PATIENT

DRUGS (1)
  1. COLAZAL [Suspect]
     Dates: start: 20091231, end: 20100110

REACTIONS (4)
  - ATRIOVENTRICULAR BLOCK COMPLETE [None]
  - CHEST PAIN [None]
  - DYSPNOEA [None]
  - PRODUCT SUBSTITUTION ISSUE [None]
